FAERS Safety Report 18309974 (Version 1)
Quarter: 2020Q3

REPORT INFORMATION
  Report Type: Spontaneous
  Country: GR (occurrence: GR)
  Receive Date: 20200924
  Receipt Date: 20200924
  Transmission Date: 20201103
  Serious: Yes (Other)
  Sender: FDA-Public Use
  Company Number: GR-ELI_LILLY_AND_COMPANY-GR202009009049

PATIENT
  Sex: Male

DRUGS (3)
  1. REMERON [Suspect]
     Active Substance: MIRTAZAPINE
     Indication: DEPRESSED MOOD
     Dosage: 1/2 TABLET OF 30MG
     Route: 048
     Dates: start: 2019
  2. ZYPREXA [Suspect]
     Active Substance: OLANZAPINE
     Indication: PRODUCT USED FOR UNKNOWN INDICATION
     Dosage: 15 MILLIGRAM, QD (EVERY NIGHT)
     Route: 065
  3. REMERON [Suspect]
     Active Substance: MIRTAZAPINE
     Indication: DEPRESSED MOOD
     Dosage: 30 MILLIGRAM, QD (EVERY NIGHT)
     Route: 048
     Dates: start: 2005, end: 2019

REACTIONS (4)
  - Syncope [Unknown]
  - Hyperhidrosis [Unknown]
  - Mood altered [Unknown]
  - Dizziness [Unknown]

NARRATIVE: CASE EVENT DATE: 2019
